FAERS Safety Report 25757348 (Version 3)
Quarter: 2025Q4

REPORT INFORMATION
  Report Type: Spontaneous
  Country: EU (occurrence: EU)
  Receive Date: 20250903
  Receipt Date: 20251009
  Transmission Date: 20260118
  Serious: Yes (Other)
  Sender: SANDOZ
  Company Number: EU-SANDOZ-SDZ2025HU062876

PATIENT
  Age: 84 Year
  Sex: Male

DRUGS (1)
  1. HYRIMOZ [Suspect]
     Active Substance: ADALIMUMAB-ADAZ
     Indication: Arthritis
     Dosage: UNK 4 CYCLES
     Route: 065
     Dates: start: 202106

REACTIONS (11)
  - Weight decreased [Unknown]
  - Arrhythmia [Unknown]
  - Skin cancer [Unknown]
  - Condition aggravated [Not Recovered/Not Resolved]
  - Malaise [Unknown]
  - Blood pressure abnormal [Unknown]
  - Dizziness [Unknown]
  - Neurological symptom [Unknown]
  - Bladder disorder [Unknown]
  - Inflammation [Unknown]
  - Onychomycosis [Unknown]
